FAERS Safety Report 6704097-5 (Version None)
Quarter: 2010Q2

REPORT INFORMATION
  Report Type: 
  Country: None (occurrence: None)
  Receive Date: 20100428
  Receipt Date: 20100420
  Transmission Date: 20101027
  Serious: Yes (Death)
  Sender: FDA-Public Use
  Company Number: 2010-1136

PATIENT
  Age: 52 Year
  Sex: Male
  Weight: 80 kg

DRUGS (1)
  1. SOMATULINE DEPOT [Suspect]
     Indication: NEUROENDOCRINE TUMOUR
     Dosage: 30 MG EVERY 15 DAYS (30 MG, 1 IN 15 D), INTRAMUSCULAR
     Route: 030
     Dates: start: 20040201, end: 20080415

REACTIONS (4)
  - DISEASE PROGRESSION [None]
  - METASTASIS [None]
  - NEUROENDOCRINE TUMOUR [None]
  - OBSTRUCTION [None]
